FAERS Safety Report 13919892 (Version 1)
Quarter: 2017Q3

REPORT INFORMATION
  Report Type: Spontaneous
  Country: US (occurrence: US)
  Receive Date: 20170829
  Receipt Date: 20170829
  Transmission Date: 20171127
  Serious: Yes (Life-Threatening, Disabling, Other)
  Sender: FDA-Public Use
  Company Number: None

PATIENT
  Age: 59 Year
  Sex: Female
  Weight: 76.5 kg

DRUGS (6)
  1. 14 MILK THISTLE [Concomitant]
  2. CHOLINE SUNFLOWER LECITHIN [Concomitant]
  3. SUPER OMEGA 3 EPA 300 / DHA 200 FORMULA FISH OIL [Concomitant]
     Active Substance: DOCONEXENT\ ICOSAPENT\ FISH OIL\ OMEGA-3 FATTY ACIDS
  4. SKLICE [Suspect]
     Active Substance: IVERMECTIN
     Indication: LICE INFESTATION
     Dosage: QUANTITY:1 TUBE;OTHER FREQUENCY:ONE DOSAGE;?
     Route: 061
     Dates: start: 20170627
  5. EFFEXOR [Concomitant]
     Active Substance: VENLAFAXINE HYDROCHLORIDE
  6. DIAZAPAM [Concomitant]
     Active Substance: DIAZEPAM

REACTIONS (16)
  - Muscle twitching [None]
  - Vasculitis [None]
  - Choking [None]
  - Pharyngeal oedema [None]
  - Hypoaesthesia [None]
  - Vision blurred [None]
  - Urinary incontinence [None]
  - Palpitations [None]
  - Dyspepsia [None]
  - Dysphagia [None]
  - Headache [None]
  - Tremor [None]
  - Insomnia [None]
  - Fatigue [None]
  - Lacrimation increased [None]
  - Swollen tongue [None]

NARRATIVE: CASE EVENT DATE: 20170627
